FAERS Safety Report 8893303 (Version 1)
Quarter: 2012Q4

REPORT INFORMATION
  Report Type: 
  Country: US (occurrence: US)
  Receive Date: 20121108
  Receipt Date: 20121108
  Transmission Date: 20130627
  Serious: Yes (Hospitalization, Other)
  Sender: FDA-Public Use
  Company Number: US-JNJFOC-20121017478

PATIENT
  Sex: Female
  Weight: 117.94 kg

DRUGS (4)
  1. REMICADE [Suspect]
     Indication: PSORIASIS
     Route: 042
     Dates: start: 2009, end: 201109
  2. REMICADE [Suspect]
     Indication: PSORIASIS
     Route: 042
     Dates: start: 201112
  3. REMICADE [Suspect]
     Indication: PSORIATIC ARTHROPATHY
     Route: 042
     Dates: start: 201112
  4. REMICADE [Suspect]
     Indication: PSORIATIC ARTHROPATHY
     Route: 042
     Dates: start: 2009, end: 201109

REACTIONS (7)
  - Drug effect decreased [Not Recovered/Not Resolved]
  - Abnormal loss of weight [Recovered/Resolved]
  - Psoriasis [Not Recovered/Not Resolved]
  - Thrombosis [Recovered/Resolved]
  - Pulmonary hypertension [Not Recovered/Not Resolved]
  - Disease progression [Not Recovered/Not Resolved]
  - Vein disorder [Not Recovered/Not Resolved]
